FAERS Safety Report 4366149-7 (Version None)
Quarter: 2004Q2

REPORT INFORMATION
  Report Type: 
  Country: None (occurrence: None)
  Receive Date: 20040524
  Receipt Date: 20040511
  Transmission Date: 20050107
  Serious: Yes (Other)
  Sender: FDA-Public Use
  Company Number: 2004213497CA

PATIENT
  Age: 25 Year
  Sex: Female
  Weight: 77.1 kg

DRUGS (2)
  1. DEPO-PROVERA [Suspect]
     Indication: CONTRACEPTION
     Dosage: 150 MG/3 MONTHS, 1ST INJ. INTRAMUSCULAR
     Route: 030
     Dates: start: 20010701, end: 20010701
  2. DEPO-PROVERA [Suspect]
     Indication: CONTRACEPTION
     Dosage: 150 MG/3 MONTHS, 1ST INJ. INTRAMUSCULAR
     Route: 030
     Dates: start: 20031201, end: 20031201

REACTIONS (9)
  - ACNE [None]
  - AMENORRHOEA [None]
  - ANGINA PECTORIS [None]
  - FATIGUE [None]
  - HEADACHE [None]
  - METRORRHAGIA [None]
  - MOOD SWINGS [None]
  - PRECANCEROUS CELLS PRESENT [None]
  - VAGINITIS [None]
